FAERS Safety Report 23304867 (Version 1)
Quarter: 2023Q4

REPORT INFORMATION
  Report Type: Spontaneous
  Country: PL (occurrence: None)
  Receive Date: 20231218
  Receipt Date: 20231218
  Transmission Date: 20240110
  Serious: Yes (Other)
  Sender: FDA-Public Use
  Company Number: None

PATIENT
  Age: 61 Year
  Sex: Male
  Weight: 95 kg

DRUGS (1)
  1. TECENTRIQ [Suspect]
     Active Substance: ATEZOLIZUMAB
     Indication: Lung neoplasm malignant
     Dosage: ONE-TIME ADMINISTRATION OF THE DRUG.
     Route: 065
     Dates: start: 20190430, end: 20190430

REACTIONS (2)
  - Asthenia [Recovered/Resolved]
  - Muscular weakness [Recovered/Resolved]
